FAERS Safety Report 7200668-0 (Version None)
Quarter: 2010Q4

REPORT INFORMATION
  Report Type: 
  Country: None (occurrence: None)
  Receive Date: 20101228
  Receipt Date: 20101223
  Transmission Date: 20110411
  Serious: Yes (Hospitalization, Other)
  Sender: FDA-Public Use
  Company Number: GB-PFIZER INC-2010178337

PATIENT
  Age: 52 Year
  Sex: Female

DRUGS (1)
  1. PREMARIN [Suspect]
     Dosage: 1.25 MG, UNK

REACTIONS (7)
  - BLOOD PRESSURE INCREASED [None]
  - DIZZINESS [None]
  - PRURITUS [None]
  - RASH MACULO-PAPULAR [None]
  - RASH PAPULAR [None]
  - RASH PRURITIC [None]
  - WHEEZING [None]
